FAERS Safety Report 6593584-9 (Version None)
Quarter: 2010Q1

REPORT INFORMATION
  Report Type: 
  Country: None (occurrence: None)
  Receive Date: 20100222
  Receipt Date: 20090812
  Transmission Date: 20100710
  Serious: No
  Sender: FDA-Public Use
  Company Number: US-BRISTOL-MYERS SQUIBB COMPANY-14738744

PATIENT
  Age: 47 Year
  Sex: Male

DRUGS (1)
  1. ORENCIA [Suspect]
     Dates: start: 20090806

REACTIONS (2)
  - DRUG ADMINISTRATION ERROR [None]
  - PAIN [None]
